FAERS Safety Report 7434951-0 (Version None)
Quarter: 2011Q2

REPORT INFORMATION
  Report Type: 
  Country: None (occurrence: None)
  Receive Date: 20110425
  Receipt Date: 20110421
  Transmission Date: 20111010
  Serious: Yes (Hospitalization)
  Sender: FDA-Public Use
  Company Number: PL-ABBOTT-11P-129-0716707-00

PATIENT
  Age: 48 Year
  Sex: Male

DRUGS (3)
  1. ATORVASTATIN [Suspect]
     Indication: MIXED HYPERLIPIDAEMIA
     Dosage: 10 MG/24 HOURS EVERY NIGHT
  2. FENOFIBRATE [Suspect]
     Indication: MIXED HYPERLIPIDAEMIA
     Dosage: 267 MG/24 HOURS
  3. FENOFIBRATE [Suspect]

REACTIONS (1)
  - EXTRAOCULAR MUSCLE DISORDER [None]
